FAERS Safety Report 6626352-X (Version None)
Quarter: 2010Q1

REPORT INFORMATION
  Report Type: 
  Country: None (occurrence: None)
  Receive Date: 20100309
  Receipt Date: 20100309
  Transmission Date: 20100710
  Serious: Yes (Hospitalization)
  Sender: FDA-Public Use
  Company Number: None

PATIENT
  Sex: Male
  Weight: 61.6 kg

DRUGS (6)
  1. CYCLOPHOSPHAMIDE [Suspect]
     Dosage: 1760 MG
  2. CYTARABINE [Suspect]
     Dosage: 1056 MG
  3. MERCAPTOPURINE [Suspect]
     Dosage: 1484 MG
  4. METHOTREXATE [Suspect]
     Dosage: 45 MG
  5. PEG-L ASPARAGINASE (K-H) [Suspect]
     Dosage: 4400 IU
  6. VINCRISTINE SULFATE [Suspect]
     Dosage: 2 MG

REACTIONS (1)
  - FEBRILE NEUTROPENIA [None]
